FAERS Safety Report 17159473 (Version 3)
Quarter: 2020Q1

REPORT INFORMATION
  Report Type: Spontaneous
  Country: JP (occurrence: JP)
  Receive Date: 20191216
  Receipt Date: 20200114
  Transmission Date: 20200409
  Serious: Yes (Other)
  Sender: FDA-Public Use
  Company Number: JP-GLAXOSMITHKLINE-JP2019226553

PATIENT
  Age: 3 Decade
  Sex: Female

DRUGS (4)
  1. WYPAX [Concomitant]
     Active Substance: LORAZEPAM
     Dosage: UNK
  2. SOLANAX [Concomitant]
     Active Substance: ALPRAZOLAM
     Dosage: UNK
  3. LAMICTAL [Suspect]
     Active Substance: LAMOTRIGINE
     Dosage: UNK
     Route: 048
  4. LAMICTAL [Suspect]
     Active Substance: LAMOTRIGINE
     Dosage: 1000 MG, SINGLE
     Route: 048
     Dates: start: 20191212, end: 20191212

REACTIONS (3)
  - Intentional overdose [Unknown]
  - Nausea [Unknown]
  - Depressed level of consciousness [Unknown]

NARRATIVE: CASE EVENT DATE: 20191212
